FAERS Safety Report 18160740 (Version 1)
Quarter: 2020Q3

REPORT INFORMATION
  Report Type: Spontaneous
  Country: IT (occurrence: IT)
  Receive Date: 20200818
  Receipt Date: 20200818
  Transmission Date: 20201103
  Serious: Yes (Death, Life-Threatening, Hospitalization, Other)
  Sender: FDA-Public Use
  Company Number: IT-LUPIN PHARMACEUTICALS INC.-2020-04732

PATIENT
  Age: 48 Year
  Sex: Female

DRUGS (10)
  1. CLOTIAPINE [Suspect]
     Active Substance: CLOTHIAPINE
     Indication: PERSONALITY DISORDER
     Dosage: 20 DROP
     Route: 065
  2. PROPRANOLOL HYDROCHLORIDE. [Concomitant]
     Active Substance: PROPRANOLOL HYDROCHLORIDE
     Indication: PRODUCT USED FOR UNKNOWN INDICATION
     Dosage: 40 MILLIGRAM
     Route: 065
  3. GABAPENTIN. [Suspect]
     Active Substance: GABAPENTIN
     Indication: PRODUCT USED FOR UNKNOWN INDICATION
     Dosage: 300 MILLIGRAM, BID
     Route: 065
  4. HALOPERIDOL. [Concomitant]
     Active Substance: HALOPERIDOL
     Indication: OBSESSIVE-COMPULSIVE DISORDER
     Dosage: 10 DROP, 12 DAY
     Route: 065
  5. HALOPERIDOL. [Concomitant]
     Active Substance: HALOPERIDOL
     Indication: PERSONALITY DISORDER
  6. FLUVOXAMINE [Suspect]
     Active Substance: FLUVOXAMINE
     Indication: PERSONALITY DISORDER
     Dosage: 150 MILLIGRAM
     Route: 065
  7. FLUVOXAMINE [Suspect]
     Active Substance: FLUVOXAMINE
     Indication: OBSESSIVE-COMPULSIVE DISORDER
  8. CLOTIAPINE [Suspect]
     Active Substance: CLOTHIAPINE
     Indication: OBSESSIVE-COMPULSIVE DISORDER
  9. CLONAZEPAM. [Suspect]
     Active Substance: CLONAZEPAM
     Indication: PERSONALITY DISORDER
     Dosage: 20 DROP, TID
     Route: 065
  10. CLONAZEPAM. [Suspect]
     Active Substance: CLONAZEPAM
     Indication: OBSESSIVE-COMPULSIVE DISORDER

REACTIONS (7)
  - Toxicity to various agents [Fatal]
  - Pulmonary alveolar haemorrhage [Fatal]
  - Asphyxia [Fatal]
  - Intentional overdose [Fatal]
  - Oedema [Fatal]
  - Drug level increased [Fatal]
  - Lung hyperinflation [Fatal]
